FAERS Safety Report 5887447-1 (Version None)
Quarter: 2008Q3

REPORT INFORMATION
  Report Type: 
  Country: None (occurrence: None)
  Receive Date: 20080917
  Receipt Date: 20080917
  Transmission Date: 20090109
  Serious: Yes (Congenital Anomaly)
  Sender: FDA-Public Use
  Company Number: None

PATIENT
  Sex: Female
  Weight: 117.9352 kg

DRUGS (1)
  1. CRESTOR [Suspect]

REACTIONS (5)
  - ABDOMINAL PAIN UPPER [None]
  - BONE PAIN [None]
  - CHEST PAIN [None]
  - CORONARY ARTERY BYPASS [None]
  - MYALGIA [None]
